FAERS Safety Report 20802787 (Version 2)
Quarter: 2022Q3

REPORT INFORMATION
  Report Type: Report from Study
  Country: US (occurrence: US)
  Receive Date: 20220509
  Receipt Date: 20220711
  Transmission Date: 20221027
  Serious: Yes (Other)
  Sender: FDA-Public Use
  Company Number: US-ABBVIE-22K-163-4384824-00

PATIENT
  Sex: Female

DRUGS (3)
  1. HUMIRA [Suspect]
     Active Substance: ADALIMUMAB
     Indication: Rheumatoid arthritis
     Dosage: CITRATE FREE
     Route: 058
  2. MODERNA COVID-19 VACCINE [Concomitant]
     Active Substance: ELASOMERAN
     Indication: COVID-19 immunisation
     Dosage: BOOSTER DOSE
     Route: 030
  3. PFIZER-BIONTECH COVID-19 VACCINE [Concomitant]
     Active Substance: TOZINAMERAN
     Indication: COVID-19 immunisation
     Dosage: FIRST DOSE
     Route: 030

REACTIONS (9)
  - Haemolytic anaemia [Unknown]
  - Guillain-Barre syndrome [Unknown]
  - Immunodeficiency [Unknown]
  - Retinal oedema [Recovering/Resolving]
  - Immunisation reaction [Unknown]
  - Arthritis [Unknown]
  - Herpes zoster [Unknown]
  - COVID-19 [Unknown]
  - Retinitis [Recovering/Resolving]
